FAERS Safety Report 9288134 (Version 1)
Quarter: 2013Q2

REPORT INFORMATION
  Report Type: Spontaneous
  Country: US (occurrence: None)
  Receive Date: 20130513
  Receipt Date: 20130513
  Transmission Date: 20140414
  Serious: Yes (Hospitalization)
  Sender: FDA-Public Use
  Company Number: None

PATIENT
  Age: 39 Year
  Sex: Male
  Weight: 88.45 kg

DRUGS (1)
  1. LATUDA [Suspect]
     Indication: BIPOLAR DISORDER
     Dosage: BEDTIME
     Route: 048
     Dates: start: 20130429, end: 20130508

REACTIONS (3)
  - Myalgia [None]
  - Arthralgia [None]
  - Walking aid user [None]
